FAERS Safety Report 4760729-2 (Version None)
Quarter: 2005Q3

REPORT INFORMATION
  Report Type: 
  Country: None (occurrence: None)
  Receive Date: 20050902
  Receipt Date: 20050822
  Transmission Date: 20060218
  Serious: Yes (Hospitalization)
  Sender: FDA-Public Use
  Company Number: 200517394GDDC

PATIENT
  Age: 51 Year
  Sex: Female

DRUGS (4)
  1. ARAVA [Suspect]
     Indication: RHEUMATOID ARTHRITIS
     Route: 048
     Dates: start: 20020227, end: 20050622
  2. VENTOLIN [Concomitant]
     Dosage: DOSE: UNK
  3. CLARITIN [Concomitant]
  4. IBUMETIN [Concomitant]

REACTIONS (5)
  - ANOREXIA [None]
  - DYSGEUSIA [None]
  - PHOTOSENSITIVITY REACTION [None]
  - SWELLING [None]
  - WEIGHT DECREASED [None]
